FAERS Safety Report 9282336 (Version 2)
Quarter: 2013Q2

REPORT INFORMATION
  Report Type: Report from Study
  Country: US (occurrence: US)
  Receive Date: 20130510
  Receipt Date: 20130527
  Transmission Date: 20140414
  Serious: Yes (Hospitalization)
  Sender: FDA-Public Use
  Company Number: US-PFIZER INC-2013134817

PATIENT
  Age: 52 Year
  Sex: Female
  Weight: 55 kg

DRUGS (5)
  1. TOFACITINIB CITRATE [Suspect]
     Indication: PSORIASIS
     Dosage: 10 MG, 2X/DAY
     Route: 048
     Dates: start: 20111003, end: 20130426
  2. GEMFIBROZIL [Concomitant]
     Indication: HYPERLIPIDAEMIA
     Dosage: 600 MG, 2X/DAY
     Route: 048
     Dates: start: 20111213
  3. OLMESARTAN [Concomitant]
     Indication: HYPERTENSION
     Dosage: 20 MG, QD
     Route: 048
     Dates: start: 20120125
  4. OXYCODONE WITH TYLENOL [Concomitant]
     Indication: PSORIATIC ARTHROPATHY
     Dosage: 10/325 MG, AS NEEDED
     Route: 048
     Dates: start: 20120909
  5. TRAMADOL [Concomitant]
     Indication: PSORIATIC ARTHROPATHY
     Dosage: 50 MG, AS NEEDED
     Route: 048
     Dates: start: 20110811

REACTIONS (1)
  - Chronic obstructive pulmonary disease [Recovering/Resolving]
